FAERS Safety Report 19894469 (Version 1)
Quarter: 2021Q3

REPORT INFORMATION
  Report Type: Spontaneous
  Country: CA (occurrence: CA)
  Receive Date: 20210929
  Receipt Date: 20210929
  Transmission Date: 20211014
  Serious: Yes (Hospitalization)
  Sender: FDA-Public Use
  Company Number: NVSC2021CA219305

PATIENT
  Age: 70 Year
  Sex: Female

DRUGS (2)
  1. SANDOZ DONEPEZIL [Suspect]
     Active Substance: DONEPEZIL HYDROCHLORIDE
     Indication: FRONTOTEMPORAL DEMENTIA
     Dosage: 5.0 MG, QD
     Route: 048
  2. SANDOZ DONEPEZIL [Suspect]
     Active Substance: DONEPEZIL HYDROCHLORIDE
     Indication: DEMENTIA ALZHEIMER^S TYPE

REACTIONS (3)
  - Aggression [Unknown]
  - Seizure [Unknown]
  - Confusional state [Unknown]
